FAERS Safety Report 11128541 (Version 3)
Quarter: 2015Q4

REPORT INFORMATION
  Report Type: Report from Study
  Country: US (occurrence: US)
  Receive Date: 20150521
  Receipt Date: 20151023
  Transmission Date: 20160304
  Serious: Yes (Hospitalization, Other)
  Sender: FDA-Public Use
  Company Number: US-SA-2014SA152305

PATIENT
  Age: 49 Year
  Sex: Female

DRUGS (2)
  1. AMPYRA [Concomitant]
     Active Substance: DALFAMPRIDINE
  2. AUBAGIO [Suspect]
     Active Substance: TERIFLUNOMIDE
     Indication: MULTIPLE SCLEROSIS
     Route: 048
     Dates: start: 20141003

REACTIONS (18)
  - Wound infection [Not Recovered/Not Resolved]
  - Fall [Unknown]
  - Depression [Not Recovered/Not Resolved]
  - Anxiety [Not Recovered/Not Resolved]
  - Pain in extremity [Unknown]
  - Hypoaesthesia [Unknown]
  - Dysphagia [Unknown]
  - Bipolar disorder [Unknown]
  - Bone disorder [Unknown]
  - Oropharyngeal pain [Unknown]
  - Spinal fusion surgery [Not Recovered/Not Resolved]
  - Walking aid user [Unknown]
  - Grip strength decreased [Unknown]
  - Hypoaesthesia [Not Recovered/Not Resolved]
  - Mood swings [Unknown]
  - Peripheral swelling [Unknown]
  - Blood iron decreased [Recovering/Resolving]
  - Weight increased [Not Recovered/Not Resolved]

NARRATIVE: CASE EVENT DATE: 2014
